FAERS Safety Report 4945335-9 (Version None)
Quarter: 2006Q1

REPORT INFORMATION
  Report Type: 
  Country: None (occurrence: None)
  Receive Date: 20060316
  Receipt Date: 20060301
  Transmission Date: 20060701
  Serious: Yes (Other)
  Sender: FDA-Public Use
  Company Number: SEWYE441101MAR06

PATIENT
  Age: 49 Year
  Sex: Female

DRUGS (3)
  1. ENBREL [Suspect]
     Indication: RHEUMATOID ARTHRITIS
     Route: 058
     Dates: start: 20040901, end: 20060123
  2. ARAVA [Concomitant]
  3. SALAZOPYRIN [Concomitant]

REACTIONS (7)
  - BREAST MASS [None]
  - DIPLOPIA [None]
  - EXTRAOCULAR MUSCLE PARESIS [None]
  - EYELID PTOSIS [None]
  - MULTIPLE SCLEROSIS [None]
  - MUSCULAR WEAKNESS [None]
  - MYASTHENIA GRAVIS [None]
